FAERS Safety Report 5973827-2 (Version None)
Quarter: 2008Q4

REPORT INFORMATION
  Report Type: 
  Country: None (occurrence: None)
  Receive Date: 20081201
  Receipt Date: 20081119
  Transmission Date: 20090506
  Serious: No
  Sender: FDA-Public Use
  Company Number: CA-ROCHE-598391

PATIENT
  Sex: Female
  Weight: 70 kg

DRUGS (2)
  1. ACCUTANE [Suspect]
     Indication: ACNE
     Dosage: PATIENT HAD TAKEN ISOTRETINOIN IN MAY-JUNE 2008
     Route: 048
     Dates: start: 20080501, end: 20080601
  2. ACCUTANE [Suspect]
     Route: 048
     Dates: start: 20080911, end: 20081018

REACTIONS (2)
  - NO ADVERSE EVENT [None]
  - PREGNANCY [None]
